FAERS Safety Report 4664823-6 (Version None)
Quarter: 2005Q2

REPORT INFORMATION
  Report Type: 
  Country: None (occurrence: None)
  Receive Date: 20050516
  Receipt Date: 20050502
  Transmission Date: 20051028
  Serious: Yes (Hospitalization, Other)
  Sender: FDA-Public Use
  Company Number: 2002064848

PATIENT
  Age: 26 Year
  Sex: Male

DRUGS (5)
  1. HYDROCORTISONE SODIUM SUCCINATE [Suspect]
     Indication: CROHN'S DISEASE
     Dosage: 400 MG (1 D), INTRAVENOUS
     Route: 042
  2. PREDNISONE [Suspect]
     Indication: CROHN'S DISEASE
     Dosage: 30 MG (1 D), ORAL
     Route: 048
  3. ETHANOL(ETHANOL) [Concomitant]
  4. OPIOIDS (OPIOIDS) [Concomitant]
  5. ANALGESICS (ANALGESICS) [Concomitant]

REACTIONS (6)
  - ABDOMINAL PAIN [None]
  - ALCOHOL USE [None]
  - HALLUCINATIONS, MIXED [None]
  - INJURY [None]
  - PSYCHOTIC DISORDER [None]
  - ROAD TRAFFIC ACCIDENT [None]
